FAERS Safety Report 9101591 (Version 1)
Quarter: 2013Q1

REPORT INFORMATION
  Report Type: Spontaneous
  Country: US (occurrence: None)
  Receive Date: 20130220
  Receipt Date: 20130220
  Transmission Date: 20140127
  Serious: No
  Sender: FDA-Public Use
  Company Number: None

PATIENT
  Age: 46 Year
  Sex: Female
  Weight: 65.14 kg

DRUGS (1)
  1. LISINOPRIL [Suspect]
     Dosage: 1 DAILY  ?1 TIME?02/15/2013  --  02/15/2013
     Dates: start: 20130215, end: 20130218

REACTIONS (3)
  - Loss of consciousness [None]
  - Blood pressure increased [None]
  - Feeling abnormal [None]
